FAERS Safety Report 6727900-1 (Version None)
Quarter: 2010Q2

REPORT INFORMATION
  Report Type: 
  Country: None (occurrence: None)
  Receive Date: 20100517
  Receipt Date: 20100510
  Transmission Date: 20101027
  Serious: Yes (Other)
  Sender: FDA-Public Use
  Company Number: JP-SANOFI-AVENTIS-2010SA026872

PATIENT
  Sex: Male

DRUGS (2)
  1. ALLEGRA [Suspect]
     Route: 048
  2. HARNAL [Concomitant]
     Route: 065

REACTIONS (1)
  - URINARY RETENTION [None]
